FAERS Safety Report 20855335 (Version 2)
Quarter: 2022Q2

REPORT INFORMATION
  Report Type: Report from Study
  Country: US (occurrence: US)
  Receive Date: 20220520
  Receipt Date: 20220527
  Transmission Date: 20220721
  Serious: Yes (Death, Other)
  Sender: FDA-Public Use
  Company Number: US-BoehringerIngelheim-2020-BI-044723

PATIENT
  Age: 81 Year
  Sex: Male

DRUGS (1)
  1. OFEV [Suspect]
     Active Substance: NINTEDANIB
     Indication: Idiopathic pulmonary fibrosis
     Route: 048
     Dates: start: 20200731

REACTIONS (20)
  - Idiopathic pulmonary fibrosis [Fatal]
  - Pulmonary fibrosis [Unknown]
  - Sepsis [Unknown]
  - Oxygen saturation increased [Unknown]
  - Cough [Unknown]
  - Vertigo [Not Recovered/Not Resolved]
  - Constipation [Not Recovered/Not Resolved]
  - Diarrhoea [Not Recovered/Not Resolved]
  - Urinary tract infection [Unknown]
  - Dyspnoea [Unknown]
  - Productive cough [Not Recovered/Not Resolved]
  - Oxygen saturation decreased [Not Recovered/Not Resolved]
  - Dyspnoea exertional [Unknown]
  - Weight increased [Unknown]
  - Oxygen saturation abnormal [Unknown]
  - Nausea [Not Recovered/Not Resolved]
  - Headache [Unknown]
  - Exercise tolerance decreased [Unknown]
  - Oxygen consumption increased [Unknown]
  - Loss of personal independence in daily activities [Unknown]

NARRATIVE: CASE EVENT DATE: 20210101
